FAERS Safety Report 21592609 (Version 1)
Quarter: 2022Q4

REPORT INFORMATION
  Report Type: Spontaneous
  Country: US (occurrence: None)
  Receive Date: 20221112
  Receipt Date: 20221112
  Transmission Date: 20230112
  Serious: Yes (Other)
  Sender: FDA-Public Use
  Company Number: None

PATIENT
  Sex: Female

DRUGS (2)
  1. XOLAIR [Suspect]
     Active Substance: OMALIZUMAB
     Indication: Asthma
     Dosage: 150MG/ML SUBCUTANEOUS?? INJECT 225MG UNDER THE SKIN (SUBCUTANEOUS INJECTION) EVERY TWO WEEKS
     Route: 058
     Dates: start: 20211116
  2. XOLAIR [Suspect]
     Active Substance: OMALIZUMAB
     Indication: Asthma
     Dosage: 75 MG/ML SUBCUTANEOUS??INJECT 225MG UNDER THE SKIN (SUBCUTANEOUS INJECTION) EVERY TWO WEEKS
     Route: 058
     Dates: start: 20211116

REACTIONS (2)
  - Surgery [None]
  - Therapy interrupted [None]
